FAERS Safety Report 8104913-9 (Version None)
Quarter: 2012Q1

REPORT INFORMATION
  Report Type: 
  Country: None (occurrence: None)
  Receive Date: 20120201
  Receipt Date: 20120130
  Transmission Date: 20120608
  Serious: Yes (Death)
  Sender: FDA-Public Use
  Company Number: US-GLAXOSMITHKLINE-A0959608A

PATIENT
  Age: 11 Year
  Sex: Male
  Weight: 35 kg

DRUGS (2)
  1. VOTRIENT [Suspect]
     Indication: DESMOPLASTIC SMALL ROUND CELL TUMOUR
     Dosage: 400MGD PER DAY
     Route: 048
     Dates: start: 20110830, end: 20111010
  2. OXYCONTIN [Concomitant]

REACTIONS (6)
  - PLATELET COUNT DECREASED [None]
  - OFF LABEL USE [None]
  - BLOOD LACTATE DEHYDROGENASE INCREASED [None]
  - NEOPLASM MALIGNANT [None]
  - BONE MARROW DISORDER [None]
  - ASTHENIA [None]
